FAERS Safety Report 8426995-7 (Version None)
Quarter: 2012Q2

REPORT INFORMATION
  Report Type: 
  Country: None (occurrence: None)
  Receive Date: 20120611
  Receipt Date: 20120531
  Transmission Date: 20120825
  Serious: Yes (Other)
  Sender: FDA-Public Use
  Company Number: US-ROCHE-1074272

PATIENT
  Sex: Female

DRUGS (1)
  1. RITUXIMAB [Suspect]
     Indication: PRODUCT USED FOR UNKNOWN INDICATION
     Dates: start: 20030428

REACTIONS (15)
  - SYSTEMIC LUPUS ERYTHEMATOSUS [None]
  - HAEMORRHAGE [None]
  - GASTRITIS [None]
  - PROGRESSIVE MULTIFOCAL LEUKOENCEPHALOPATHY [None]
  - IRON DEFICIENCY ANAEMIA [None]
  - CONSTIPATION [None]
  - BLOOD GLUCOSE INCREASED [None]
  - HAEMORRHOIDS [None]
  - EPISTAXIS [None]
  - ANAEMIA [None]
  - GASTRIC POLYPS [None]
  - IDIOPATHIC THROMBOCYTOPENIC PURPURA [None]
  - LYMPHADENOPATHY [None]
  - DIVERTICULUM [None]
  - MIGRAINE [None]
